FAERS Safety Report 9618694 (Version 5)
Quarter: 2014Q1

REPORT INFORMATION
  Report Type: Report from Study
  Country: NL (occurrence: NL)
  Receive Date: 20131014
  Receipt Date: 20140221
  Transmission Date: 20141002
  Serious: Yes (Death, Hospitalization)
  Sender: FDA-Public Use
  Company Number: NL-JNJFOC-20130915417

PATIENT
  Sex: Male
  Weight: 89 kg

DRUGS (11)
  1. ABIRATERONE [Suspect]
     Indication: PROSTATE CANCER
     Route: 048
     Dates: start: 20120531, end: 20120907
  2. INSPRA [Concomitant]
  3. FUROSEMIDE [Concomitant]
     Route: 065
  4. OXAZEPAM [Concomitant]
     Route: 065
  5. METOPROLOL [Concomitant]
  6. ALFACALCIDOL [Concomitant]
     Route: 065
  7. BUMETANIDE [Concomitant]
  8. FLUIMICIL [Concomitant]
  9. ACENOCOUMAROL [Concomitant]
     Route: 065
  10. PANTOPRAZOLE [Concomitant]
  11. MOVICOLON [Concomitant]

REACTIONS (2)
  - Cardiac failure [Fatal]
  - Right ventricular dysfunction [Recovering/Resolving]
